FAERS Safety Report 9448157 (Version 1)
Quarter: 2013Q3

REPORT INFORMATION
  Report Type: Spontaneous
  Country: US (occurrence: US)
  Receive Date: 20130808
  Receipt Date: 20130808
  Transmission Date: 20140515
  Serious: Yes (Other)
  Sender: FDA-Public Use
  Company Number: US-ASTRAZENECA-2013SE59633

PATIENT
  Age: 69 Year
  Sex: Female

DRUGS (3)
  1. BRILINTA [Suspect]
     Indication: ANGINA UNSTABLE
     Route: 048
  2. ASPIRIN [Concomitant]
     Indication: ANGINA UNSTABLE
  3. ORAL ANTI PLATELET [Concomitant]

REACTIONS (2)
  - Dyspnoea [Recovered/Resolved]
  - Anxiety [Unknown]
